FAERS Safety Report 9713937 (Version 1)
Quarter: 2013Q4

REPORT INFORMATION
  Report Type: Spontaneous
  Country: US (occurrence: US)
  Receive Date: 20131126
  Receipt Date: 20131126
  Transmission Date: 20140711
  Serious: No
  Sender: FDA-Public Use
  Company Number: US-GILEAD-2008-0018249

PATIENT
  Age: 77 Year
  Sex: Female
  Weight: 58.97 kg

DRUGS (10)
  1. LETAIRIS [Suspect]
     Indication: PULMONARY ARTERIAL HYPERTENSION
     Route: 048
     Dates: start: 20080722, end: 20080729
  2. LASIX [Concomitant]
     Route: 001
  3. DYNACIRC [Concomitant]
     Route: 048
  4. TOPROL XL [Concomitant]
     Route: 048
  5. PLAVIX [Concomitant]
     Route: 048
  6. ALBUTEROL MDI [Concomitant]
     Dosage: AS NEEDED
     Route: 055
  7. ADVAIR [Concomitant]
     Route: 055
     Dates: start: 200709
  8. ALTACE [Concomitant]
     Route: 048
  9. VYTORIN [Concomitant]
     Route: 048
  10. ADULT ASA [Concomitant]
     Route: 048

REACTIONS (2)
  - Dizziness [Recovered/Resolved]
  - Dyspnoea [Recovered/Resolved]
